FAERS Safety Report 5044444-6 (Version None)
Quarter: 2006Q3

REPORT INFORMATION
  Report Type: 
  Country: None (occurrence: None)
  Receive Date: 20060706
  Receipt Date: 20060222
  Transmission Date: 20061208
  Serious: Yes (Other)
  Sender: FDA-Public Use
  Company Number: US-GLAXOSMITHKLINE-A0594804A

PATIENT
  Age: 39 Year
  Sex: Male
  Weight: 85.5 kg

DRUGS (3)
  1. ADVAIR DISKUS 100/50 [Suspect]
     Indication: ASTHMA
     Route: 055
  2. PREDNISONE TAB [Suspect]
  3. CARBAMAZEPINE [Concomitant]
     Indication: CONVULSION

REACTIONS (1)
  - CONVULSION [None]
